FAERS Safety Report 6826036-9 (Version None)
Quarter: 2010Q3

REPORT INFORMATION
  Report Type: 
  Country: None (occurrence: None)
  Receive Date: 20100709
  Receipt Date: 20100217
  Transmission Date: 20110219
  Serious: Yes (Other)
  Sender: FDA-Public Use
  Company Number: US-ASTRAZENECA-2008UW27584

PATIENT
  Age: 22044 Day
  Sex: Male
  Weight: 127 kg

DRUGS (5)
  1. SEROQUEL [Suspect]
     Indication: MENTAL DISORDER
     Route: 048
     Dates: start: 20041201, end: 20060601
  2. SEROQUEL [Suspect]
     Indication: DEPRESSION
     Route: 048
     Dates: start: 20041201, end: 20060601
  3. ABILIFY [Concomitant]
  4. RISPERDAL [Concomitant]
  5. FLUOXETINE [Concomitant]
     Indication: ANXIETY
     Dates: start: 20050718

REACTIONS (3)
  - DIABETES MELLITUS [None]
  - DIABETIC NEUROPATHY [None]
  - NEOPLASM [None]
